FAERS Safety Report 20652567 (Version 1)
Quarter: 2022Q1

REPORT INFORMATION
  Report Type: Spontaneous
  Country: PL (occurrence: PL)
  Receive Date: 20220330
  Receipt Date: 20220330
  Transmission Date: 20220423
  Serious: Yes (Hospitalization, Other)
  Sender: FDA-Public Use
  Company Number: None

PATIENT
  Age: 70 Year
  Sex: Male

DRUGS (13)
  1. DICLOFENAC [Interacting]
     Active Substance: DICLOFENAC
     Indication: Product used for unknown indication
     Dosage: UNK, IN THE FORM OF TWO DIFFERENT PREPARATIONS
     Route: 065
  2. INDAPAMIDE [Interacting]
     Active Substance: INDAPAMIDE
     Indication: Product used for unknown indication
     Dosage: 1 DOSAGE FORM PER DAY (TABLETS)
     Route: 065
  3. NIMESULIDE [Interacting]
     Active Substance: NIMESULIDE
     Indication: Product used for unknown indication
     Dosage: UNK, IN THE FORM OF TWO DIFFERENT PREPARATIONS
     Route: 065
  4. KETOPROFEN [Interacting]
     Active Substance: KETOPROFEN
     Indication: Product used for unknown indication
     Dosage: UNK, IN THE FORM OF TWO DIFFERENT PREPARATIONS
     Route: 065
  5. ASPIRIN [Interacting]
     Active Substance: ASPIRIN
     Indication: Product used for unknown indication
     Dosage: 1 DOSAGE FORM PER DAY
     Route: 065
  6. DULOXETINE [Interacting]
     Active Substance: DULOXETINE
     Indication: Spinal pain
     Dosage: 1 DOSAGE FORM PER DAY
     Route: 065
  7. CELECOXIB [Interacting]
     Active Substance: CELECOXIB
     Indication: Product used for unknown indication
     Dosage: UNK, IN THE FORM OF TWO DIFFERENT PREPARATIONS
     Route: 065
  8. GABAPENTIN 100mg Tablet [Concomitant]
     Indication: Product used for unknown indication
     Dosage: 1 DOSAGE FORM EVERY 12 HOURS
     Route: 065
  9. NEBIVOLOL 5 mg - TABLET [Concomitant]
     Indication: Product used for unknown indication
     Dosage: 1 DOSAGE FORM PER DAY
     Route: 065
  10. ATORVASTATIN 80mg - TABLET [Concomitant]
     Indication: Product used for unknown indication
     Dosage: 1 DOSAGE FORM PER DAY
     Route: 065
  11. METFORMIN 850mg - TABLET [Concomitant]
     Indication: Type 2 diabetes mellitus
     Dosage: 1 DOSAGE FORM EVERY 8 HOURS AT MEALS
     Route: 065
  12. PANTOPRAZOLE 20mg Tablet [Concomitant]
     Indication: Product used for unknown indication
     Dosage: 1 DOSAGE FORM PER DAY (UNDER FASTING CONDITIONS)
     Route: 065
  13. VALSARTAN 80 mg - TABLET [Concomitant]
     Indication: Product used for unknown indication
     Dosage: 1 DOSAGE FORM PER DAY
     Route: 065

REACTIONS (3)
  - Urinary retention [Recovered/Resolved]
  - Hyponatraemia [Recovered/Resolved]
  - Drug interaction [Recovered/Resolved]
